FAERS Safety Report 5263320-7 (Version None)
Quarter: 2007Q1

REPORT INFORMATION
  Report Type: 
  Country: None (occurrence: None)
  Receive Date: 20061219
  Receipt Date: 20060824
  Transmission Date: 20070707
  Serious: No
  Sender: FDA-Public Use
  Company Number: 2006US001933

PATIENT
  Age: 82 Year
  Sex: Male

DRUGS (8)
  1. VESICARE [Suspect]
     Indication: HYPERTONIC BLADDER
     Dosage: 5 MG, UID/QD, ORAL
     Route: 048
     Dates: start: 20060101
  2. TOPROL-XL [Concomitant]
  3. PAROXETINE [Concomitant]
  4. ARICEPT [Concomitant]
  5. ASPIRIN [Concomitant]
  6. BENICAR [Concomitant]
  7. VYTORIN (SIMVASTATIN, EZETIMIBE) [Concomitant]
  8. GLUCOTROL [Concomitant]

REACTIONS (2)
  - CONSTIPATION [None]
  - POLLAKIURIA [None]
